FAERS Safety Report 25407463 (Version 2)
Quarter: 2025Q2

REPORT INFORMATION
  Report Type: Spontaneous
  Country: CN (occurrence: CN)
  Receive Date: 20250606
  Receipt Date: 20250627
  Transmission Date: 20250716
  Serious: Yes (Other)
  Sender: EMD SERONO INC
  Company Number: CN-Merck Healthcare KGaA-2025027435

PATIENT
  Age: 35 Year
  Sex: Female

DRUGS (4)
  1. GONAL-F [Suspect]
     Active Substance: FOLLITROPIN
     Indication: Ovulation induction
     Dates: start: 20250511
  2. GLUCOPHAGE [Suspect]
     Active Substance: METFORMIN HYDROCHLORIDE
     Indication: Product used for unknown indication
  3. DYDROGESTERONE [Suspect]
     Active Substance: DYDROGESTERONE
     Indication: Product used for unknown indication
  4. MINERALS\VITAMINS [Suspect]
     Active Substance: MINERALS\VITAMINS
     Indication: Product used for unknown indication

REACTIONS (8)
  - Toxicity to various agents [Unknown]
  - Platelet count decreased [Unknown]
  - Acute lymphocytic leukaemia [Unknown]
  - Discomfort [Unknown]
  - Pain in extremity [Recovered/Resolved]
  - Asthenia [Unknown]
  - Blood chloride decreased [Unknown]
  - Transaminases increased [Unknown]

NARRATIVE: CASE EVENT DATE: 20250515
